FAERS Safety Report 12638607 (Version 13)
Quarter: 2018Q1

REPORT INFORMATION
  Report Type: Report from Study
  Country: DE (occurrence: DE)
  Receive Date: 20160809
  Receipt Date: 20180208
  Transmission Date: 20180508
  Serious: Yes (Hospitalization, Other)
  Sender: FDA-Public Use
  Company Number: DE-INCYTE CORPORATION-2016IN004827

PATIENT

DRUGS (16)
  1. NOVAMINSULFON [Concomitant]
     Active Substance: METAMIZOLE
     Indication: BONE PAIN
  2. OMEPRAZOLE. [Concomitant]
     Active Substance: OMEPRAZOLE
     Indication: GASTRITIS
     Dosage: UNK
     Route: 065
     Dates: start: 1997, end: 20160616
  3. NOVAMINSULFON [Concomitant]
     Active Substance: METAMIZOLE
     Indication: PAIN
  4. AMLODIPINE [Concomitant]
     Active Substance: AMLODIPINE BESYLATE
     Indication: HYPERTENSION
     Dosage: UNK
     Route: 065
     Dates: start: 20160714, end: 20161130
  5. JAKAVI [Suspect]
     Active Substance: RUXOLITINIB
     Indication: MYELOFIBROSIS
     Dosage: 40 MG, QD
     Route: 048
     Dates: start: 20130906
  6. BISOPROLOL [Concomitant]
     Active Substance: BISOPROLOL
     Indication: HYPERTENSION
     Dosage: UNK
     Route: 065
     Dates: start: 2006
  7. JAKAVI [Suspect]
     Active Substance: RUXOLITINIB
     Indication: MYELOFIBROSIS
     Dosage: 20 MG, BID
     Route: 048
     Dates: start: 20120209, end: 20121103
  8. LYRICA [Concomitant]
     Active Substance: PREGABALIN
     Indication: PAIN IN EXTREMITY
     Dosage: 100 OT, UNK
     Route: 048
     Dates: start: 2014
  9. LYRICA [Concomitant]
     Active Substance: PREGABALIN
     Indication: BACK PAIN
  10. LYRICA [Concomitant]
     Active Substance: PREGABALIN
     Indication: BONE PAIN
  11. INDAPAMID [Concomitant]
     Active Substance: INDAPAMIDE
     Indication: HYPERTENSION
     Dosage: UNK
     Route: 065
     Dates: start: 20140702, end: 20160713
  12. NOVAMINSULFON [Concomitant]
     Active Substance: METAMIZOLE
     Indication: PAIN IN EXTREMITY
     Dosage: 1500 OT, UNK
     Route: 048
     Dates: start: 2014
  13. NOVAMINSULFON [Concomitant]
     Active Substance: METAMIZOLE
     Indication: BACK PAIN
  14. DICLOPHENAC [Concomitant]
     Active Substance: DICLOFENAC SODIUM
     Indication: PAIN IN EXTREMITY
     Dosage: 100 OT, UNK
     Route: 048
  15. DICLOPHENAC [Concomitant]
     Active Substance: DICLOFENAC SODIUM
     Indication: BACK PAIN
  16. CARMEN [Concomitant]
     Active Substance: LERCANIDIPINE
     Indication: HYPERTENSION
     Dosage: UNK
     Route: 065
     Dates: start: 20161201

REACTIONS (29)
  - Bone pain [Not Recovered/Not Resolved]
  - Memory impairment [Recovered/Resolved]
  - Renal failure [Not Recovered/Not Resolved]
  - Respiratory failure [Not Recovered/Not Resolved]
  - Rotator cuff syndrome [Recovered/Resolved]
  - Epistaxis [Recovered/Resolved]
  - Fall [Recovered/Resolved with Sequelae]
  - Cardiac failure [Recovered/Resolved]
  - Sleep disorder [Unknown]
  - Urinary tract infection [Recovered/Resolved]
  - Cardiac failure [Recovered/Resolved]
  - Musculoskeletal pain [Recovered/Resolved]
  - Pain in extremity [Recovered/Resolved]
  - Back pain [Recovered/Resolved]
  - Urinary tract infection [Recovered/Resolved]
  - Abdominal pain [Recovered/Resolved]
  - Haematoma [Recovered/Resolved]
  - Nausea [Recovered/Resolved]
  - Osteoarthritis [Not Recovered/Not Resolved]
  - Dyspnoea [Recovered/Resolved]
  - Pain [Unknown]
  - Spontaneous haematoma [Recovered/Resolved]
  - Urinary tract infection [Recovered/Resolved]
  - Musculoskeletal pain [Recovering/Resolving]
  - Vomiting [Recovered/Resolved]
  - Cystitis [Recovered/Resolved]
  - Arthritis bacterial [Recovered/Resolved]
  - Abdominal discomfort [Recovered/Resolved]
  - Thrombocytopenia [Recovered/Resolved]

NARRATIVE: CASE EVENT DATE: 20131104
